FAERS Safety Report 21162840 (Version 1)
Quarter: 2022Q3

REPORT INFORMATION
  Report Type: Spontaneous
  Country: US (occurrence: US)
  Receive Date: 20220802
  Receipt Date: 20220802
  Transmission Date: 20221026
  Serious: Yes (Hospitalization, Disabling, Other)
  Sender: FDA-Public Use
  Company Number: NUS2022U112376

PATIENT
  Age: 55 Year
  Sex: Male
  Weight: 86.168 kg

DRUGS (17)
  1. LEVOTHYROXINE SODIUM [Suspect]
     Active Substance: LEVOTHYROXINE SODIUM
     Indication: Product used for unknown indication
     Dosage: 50 MICROGRAM, QD
     Route: 048
     Dates: start: 202206
  2. ENTRESTO [Suspect]
     Active Substance: SACUBITRIL\VALSARTAN
     Indication: Cardiac failure congestive
     Dosage: 49.51 MG, BID
     Route: 048
     Dates: start: 20220715
  3. JARDIANCE [Suspect]
     Active Substance: EMPAGLIFLOZIN
     Indication: Cardiac failure congestive
     Dosage: 10 MG, QD
     Route: 048
     Dates: start: 20220627
  4. WARFARIN [Suspect]
     Active Substance: WARFARIN
     Indication: Thrombosis
     Dosage: 2.5 MG, 2 TABLETS ON MONDAY, MORNING AND NIGHT
     Route: 048
     Dates: start: 202206
  5. WARFARIN [Suspect]
     Active Substance: WARFARIN
     Dosage: 2.5 MG, 2 TABLETS ON FRIDAY, MORNING AND NIGHT
     Route: 048
     Dates: start: 202206
  6. WARFARIN [Suspect]
     Active Substance: WARFARIN
     Dosage: 2.5 MG, 1 TABLET EVERY OTHER DAY, MORNING
     Route: 048
     Dates: start: 202206
  7. FUROSEMIDE [Suspect]
     Active Substance: FUROSEMIDE
     Indication: Oedema
     Dosage: 40 MG, QD
     Route: 048
     Dates: start: 202206
  8. ONDANSETRON [Suspect]
     Active Substance: ONDANSETRON
     Indication: Nausea
     Dosage: 4 MG, PRN
     Route: 048
     Dates: start: 202207
  9. CARVEDILOL [Suspect]
     Active Substance: CARVEDILOL
     Indication: Product used for unknown indication
     Dosage: UNK, BID
     Route: 048
     Dates: start: 202206
  10. SPIRONOLACTONE [Suspect]
     Active Substance: SPIRONOLACTONE
     Indication: Product used for unknown indication
     Dosage: 25 MG, QD
     Route: 048
     Dates: start: 20220628
  11. TRAZODONE [Suspect]
     Active Substance: TRAZODONE HYDROCHLORIDE
     Indication: Sleep disorder
     Dosage: 100 MG, PRN
     Route: 048
     Dates: start: 2021
  12. ATORVASTATIN [Suspect]
     Active Substance: ATORVASTATIN
     Indication: Blood cholesterol
     Dosage: 10 MG, QD
     Route: 048
     Dates: start: 20220328
  13. PANTOPRAZOLE [Suspect]
     Active Substance: PANTOPRAZOLE
     Indication: Dyspepsia
     Dosage: 40 MG, QD
     Route: 048
     Dates: start: 2022
  14. PANTOPRAZOLE [Suspect]
     Active Substance: PANTOPRAZOLE
     Indication: Gastrooesophageal reflux disease
  15. LOSARTAN [Suspect]
     Active Substance: LOSARTAN
     Indication: Blood pressure measurement
     Dosage: 50 MG, QD
     Route: 048
     Dates: start: 202206
  16. TADALAFIL [Suspect]
     Active Substance: TADALAFIL
     Indication: Erectile dysfunction
     Dosage: 10 MG, PRN
     Route: 048
     Dates: start: 2021
  17. ALBUTEROL SULFATE [Suspect]
     Active Substance: ALBUTEROL SULFATE
     Indication: Asthma
     Dosage: 90 MICROGRAM, PRN
     Route: 048

REACTIONS (5)
  - Pulmonary oedema [Not Recovered/Not Resolved]
  - Peripheral swelling [Recovering/Resolving]
  - Dyspnoea [Not Recovered/Not Resolved]
  - Cough [Not Recovered/Not Resolved]
  - Insomnia [Unknown]

NARRATIVE: CASE EVENT DATE: 20220601
